FAERS Safety Report 8837608 (Version 1)
Quarter: 2012Q4

REPORT INFORMATION
  Report Type: 
  Country: US (occurrence: US)
  Receive Date: 20121012
  Receipt Date: 20121012
  Transmission Date: 20130627
  Serious: No
  Sender: FDA-Public Use
  Company Number: US-TEVA-364114USA

PATIENT
  Age: 21 Year
  Sex: Female
  Weight: 113.5 kg

DRUGS (2)
  1. PLAN B ONE-STEP [Suspect]
     Indication: POST COITAL CONTRACEPTION
     Dosage: 1.5 Milligram Daily;
     Route: 048
     Dates: start: 20121004, end: 20121004
  2. EPHEDRINE [Concomitant]
     Indication: WEIGHT DECREASED
     Dosage: 37.5 Milligram Daily;
     Route: 048

REACTIONS (3)
  - Back pain [Unknown]
  - Nausea [Not Recovered/Not Resolved]
  - Headache [Unknown]
